FAERS Safety Report 7235620-2 (Version None)
Quarter: 2011Q1

REPORT INFORMATION
  Report Type: 
  Country: None (occurrence: None)
  Receive Date: 20110120
  Receipt Date: 20110114
  Transmission Date: 20110831
  Serious: Yes (Hospitalization)
  Sender: FDA-Public Use
  Company Number: US-B.I. PHARMACEUTICALS,INC./RIDGEFIELD-2010-BP-13722BP

PATIENT
  Sex: Male

DRUGS (10)
  1. SPIRIVA [Suspect]
     Dosage: 18 MCG
     Route: 055
     Dates: start: 20101101
  2. ATENOLOL [Concomitant]
     Indication: HYPERTENSION
  3. GABAPENTIN [Concomitant]
     Indication: NEUROPATHY PERIPHERAL
  4. SPIRIVA [Suspect]
     Indication: LUNG DISORDER
     Dosage: 18 MCG
     Route: 055
     Dates: start: 20090101, end: 20091201
  5. FUROSEMIDE [Concomitant]
     Indication: FLUID RETENTION
  6. ALBUTEROL [Concomitant]
     Indication: LUNG DISORDER
  7. AGGRENOX [Concomitant]
     Indication: CEREBROVASCULAR ACCIDENT
  8. OMEPRAZOLE [Concomitant]
     Indication: ABDOMINAL DISCOMFORT
  9. ETOLAC [Concomitant]
     Indication: ARTHRITIS
  10. SIMVASTATIN [Concomitant]
     Indication: BLOOD CHOLESTEROL INCREASED

REACTIONS (2)
  - WALKING AID USER [None]
  - HIP FRACTURE [None]
